FAERS Safety Report 7823780-1 (Version None)
Quarter: 2011Q4

REPORT INFORMATION
  Report Type: 
  Country: None (occurrence: None)
  Receive Date: 20111019
  Receipt Date: 20111017
  Transmission Date: 20120403
  Serious: Yes (Other)
  Sender: FDA-Public Use
  Company Number: US-PFIZER INC-2007050400

PATIENT
  Sex: Female
  Weight: 126.8 kg

DRUGS (6)
  1. AMANTADINE [Concomitant]
     Indication: ILL-DEFINED DISORDER
     Dosage: UNK
  2. AMANTADINE [Concomitant]
     Indication: ACCIDENT
  3. CHANTIX [Suspect]
     Dosage: 1 MG, UNK
     Route: 048
     Dates: start: 20070101, end: 20070101
  4. OXYCODONE [Concomitant]
     Indication: ILL-DEFINED DISORDER
     Dosage: 30 MG, UNK
  5. CHANTIX [Suspect]
     Indication: SMOKING CESSATION THERAPY
     Dosage: 0.5 MG, 1X/DAY
     Route: 048
     Dates: start: 20070101, end: 20070101
  6. OXYCODONE [Concomitant]
     Indication: ACCIDENT

REACTIONS (6)
  - ANGER [None]
  - AGITATION [None]
  - SLEEP DISORDER [None]
  - ABNORMAL DREAMS [None]
  - INSOMNIA [None]
  - VIOLENCE-RELATED SYMPTOM [None]
